FAERS Safety Report 15310106 (Version 10)
Quarter: 2025Q4

REPORT INFORMATION
  Report Type: Spontaneous
  Country: US (occurrence: US)
  Receive Date: 20180823
  Receipt Date: 20251104
  Transmission Date: 20260117
  Serious: Yes (Hospitalization)
  Sender: PFIZER
  Company Number: US-PFIZER INC-2018338461

PATIENT
  Age: 26 Year
  Sex: Male
  Weight: 136 kg

DRUGS (8)
  1. SOMAVERT [Suspect]
     Active Substance: PEGVISOMANT
     Indication: Acromegaly
     Dosage: 60 MG, DAILY
     Dates: start: 20170407
  2. SOMAVERT [Suspect]
     Active Substance: PEGVISOMANT
     Dosage: 60 MG, DAILY
     Dates: start: 20170421
  3. SOMAVERT [Suspect]
     Active Substance: PEGVISOMANT
     Dosage: 60 MG, DAILY
     Route: 058
     Dates: start: 201704
  4. SOMAVERT [Suspect]
     Active Substance: PEGVISOMANT
     Dosage: 50 MG, DAILY
     Route: 058
     Dates: start: 20180201
  5. SOMAVERT [Suspect]
     Active Substance: PEGVISOMANT
     Dosage: 60 MG, DAILY
     Dates: start: 201810
  6. SANDOSTATIN LAR DEPOT [Concomitant]
     Active Substance: OCTREOTIDE ACETATE
     Indication: Acromegaly
     Dosage: 30 MG, EVERY 3 WEEKS (30MG INJECTION ONCE EVERY 3 WEEKS)
     Dates: start: 201707
  7. OCTREOTIDE [Concomitant]
     Active Substance: OCTREOTIDE
     Indication: Acromegaly
     Dosage: 200 UG, INJECTION EVERY 2 HOURS
     Dates: start: 201703
  8. SANDOSTATIN [Concomitant]
     Active Substance: OCTREOTIDE ACETATE
     Dosage: UNK

REACTIONS (15)
  - Glucose tolerance impaired [Not Recovered/Not Resolved]
  - Blood glucose increased [Not Recovered/Not Resolved]
  - Glycosylated haemoglobin increased [Not Recovered/Not Resolved]
  - Insulin-like growth factor increased [Recovering/Resolving]
  - Alanine aminotransferase increased [Recovered/Resolved]
  - Blood testosterone increased [Recovered/Resolved]
  - Thyroid gland scan abnormal [Recovered/Resolved]
  - Blood thyroid stimulating hormone decreased [Recovered/Resolved]
  - Thyroxine free decreased [Recovered/Resolved]
  - Low density lipoprotein increased [Not Recovered/Not Resolved]
  - Non-high-density lipoprotein cholesterol increased [Not Recovered/Not Resolved]
  - Blood triglycerides increased [Not Recovered/Not Resolved]
  - Bone density increased [Not Recovered/Not Resolved]
  - Hyperhidrosis [Recovered/Resolved]
  - Off label use [Unknown]

NARRATIVE: CASE EVENT DATE: 20170407
